FAERS Safety Report 17878000 (Version 2)
Quarter: 2020Q3

REPORT INFORMATION
  Report Type: Spontaneous
  Country: US (occurrence: US)
  Receive Date: 20200609
  Receipt Date: 20200701
  Transmission Date: 20201103
  Serious: Yes (Other)
  Sender: FDA-Public Use
  Company Number: US-009507513-2006USA001165

PATIENT
  Sex: Female

DRUGS (1)
  1. ALENDRONATE SODIUM. [Suspect]
     Active Substance: ALENDRONATE SODIUM

REACTIONS (7)
  - Ectopic pregnancy [Unknown]
  - Pain in extremity [Not Recovered/Not Resolved]
  - Fallopian tube disorder [Unknown]
  - Limb mass [Not Recovered/Not Resolved]
  - Arthritis [Unknown]
  - Exostosis of jaw [Not Recovered/Not Resolved]
  - Pelvic mass [Not Recovered/Not Resolved]
